FAERS Safety Report 6602709-8 (Version None)
Quarter: 2010Q1

REPORT INFORMATION
  Report Type: 
  Country: None (occurrence: None)
  Receive Date: 20100218
  Receipt Date: 20100205
  Transmission Date: 20100710
  Serious: Yes (Hospitalization)
  Sender: FDA-Public Use
  Company Number: 2010AL000931

PATIENT
  Age: 36 Year
  Sex: Male

DRUGS (7)
  1. CITALOPRAM HYDROBROMIDE [Suspect]
  2. LORAZEPAM [Suspect]
     Dosage: PO
     Route: 048
  3. DIAZEPAM TAB [Suspect]
  4. CLOZAPINE [Concomitant]
  5. PARACETAMOL [Concomitant]
  6. TEMAZEPAM [Concomitant]
  7. GAVISCON [Concomitant]

REACTIONS (2)
  - OVERDOSE [None]
  - SUICIDE ATTEMPT [None]
